FAERS Safety Report 16624594 (Version 1)
Quarter: 2019Q3

REPORT INFORMATION
  Report Type: Report from Study
  Country: IT (occurrence: IT)
  Receive Date: 20190724
  Receipt Date: 20190724
  Transmission Date: 20191004
  Serious: Yes (Hospitalization)
  Sender: FDA-Public Use
  Company Number: IT-TEVA-2019-IT-1081908

PATIENT
  Age: 69 Year
  Sex: Male
  Weight: 80 kg

DRUGS (2)
  1. AMIODARONE [Suspect]
     Active Substance: AMIODARONE
     Dosage: 1 DOSAGE FORMS DAILY;
     Route: 048
  2. TAPAZOLE [Suspect]
     Active Substance: METHIMAZOLE
     Dosage: 4 DOSAGE FORMS DAILY;
     Route: 048
     Dates: start: 20190509, end: 20190523

REACTIONS (2)
  - Hepatitis acute [Recovered/Resolved]
  - Hyperthyroidism [Recovered/Resolved]

NARRATIVE: CASE EVENT DATE: 20190525
